FAERS Safety Report 7345687-9 (Version None)
Quarter: 2011Q1

REPORT INFORMATION
  Report Type: 
  Country: None (occurrence: None)
  Receive Date: 20110310
  Receipt Date: 20110301
  Transmission Date: 20110831
  Serious: Yes (Other)
  Sender: FDA-Public Use
  Company Number: B0704422A

PATIENT
  Age: 21 Year
  Sex: Male
  Weight: 90 kg

DRUGS (6)
  1. FENTANYL [Concomitant]
     Dosage: 150MCG PER DAY
     Route: 065
  2. AUGMENTIN '125' [Suspect]
     Dosage: 2G PER DAY
     Route: 065
  3. ATROPINE [Concomitant]
     Dosage: .8MG PER DAY
     Route: 065
  4. ROCURONIUM BROMIDE [Concomitant]
     Dosage: 50MG PER DAY
  5. MIDAZOLAM [Concomitant]
     Dosage: 2MG PER DAY
     Route: 065
  6. PROPOFOL [Concomitant]
     Dosage: 180MG PER DAY

REACTIONS (6)
  - PNEUMOTHORAX [None]
  - ANAPHYLACTIC REACTION [None]
  - HYPOVENTILATION [None]
  - OXYGEN SATURATION DECREASED [None]
  - RASH [None]
  - PULSELESS ELECTRICAL ACTIVITY [None]
